FAERS Safety Report 4387846-3 (Version None)
Quarter: 2004Q2

REPORT INFORMATION
  Report Type: 
  Country: None (occurrence: None)
  Receive Date: 20040623
  Receipt Date: 20040608
  Transmission Date: 20050107
  Serious: Yes (Hospitalization)
  Sender: FDA-Public Use
  Company Number: USA040669677

PATIENT
  Age: 82 Year
  Sex: Female

DRUGS (10)
  1. FORTEO [Suspect]
     Indication: OSTEOPOROSIS
     Dates: start: 20040527
  2. AVANDIA [Concomitant]
  3. POTASSIUM [Concomitant]
  4. ASPIRIN [Concomitant]
  5. SYNTHROID [Concomitant]
  6. NEXIUM [Concomitant]
  7. LANOXIN [Concomitant]
  8. FUROSEMIDE [Concomitant]
  9. VITAMIN E [Concomitant]
  10. HEMOCYTE PLUS [Concomitant]

REACTIONS (3)
  - FALL [None]
  - PAIN [None]
  - PHARMACEUTICAL PRODUCT COMPLAINT [None]
